FAERS Safety Report 9483943 (Version 2)
Quarter: 2013Q3

REPORT INFORMATION
  Report Type: Report from Study
  Country: ZA (occurrence: ZA)
  Receive Date: 20130828
  Receipt Date: 20130828
  Transmission Date: 20140515
  Serious: Yes (Hospitalization)
  Sender: FDA-Public Use
  Company Number: PHHO2009ZA06033

PATIENT
  Age: 72 Year
  Sex: Male
  Weight: 61 kg

DRUGS (7)
  1. ALISKIREN [Suspect]
     Indication: CARDIOVASCULAR DISORDER
     Route: 048
     Dates: start: 20081213, end: 20090503
  2. ALISKIREN [Suspect]
     Route: 048
     Dates: start: 20090513
  3. RENITEC [Concomitant]
  4. NORVASC [Concomitant]
  5. DISPRIN [Concomitant]
  6. LIPITOR [Concomitant]
  7. DAONIL [Concomitant]

REACTIONS (5)
  - Epilepsy [Recovered/Resolved]
  - Grand mal convulsion [Recovered/Resolved]
  - Urinary incontinence [Recovered/Resolved]
  - Tongue biting [Recovered/Resolved]
  - Tonic clonic movements [Recovered/Resolved]
